FAERS Safety Report 9207029 (Version 1)
Quarter: 2013Q2

REPORT INFORMATION
  Report Type: Other
  Country: BR (occurrence: BR)
  Receive Date: 20130402
  Receipt Date: 20130402
  Transmission Date: 20140414
  Serious: Yes (Other)
  Sender: FDA-Public Use
  Company Number: BR-CTI_01566_2013

PATIENT
  Age: 36 Year
  Sex: Female

DRUGS (3)
  1. RIVOTRIL [Concomitant]
     Indication: ANXIETY
     Dosage: [10 DROPS ONCE AT NIGHT]
     Dates: start: 2000
  2. ALLESTRA [Suspect]
     Indication: ORAL CONTRACEPTION
     Route: 048
     Dates: start: 2010
  3. FACTIVE [Suspect]
     Indication: SINUSITIS
     Route: 048
     Dates: start: 20130314, end: 20130320

REACTIONS (7)
  - Drug interaction [Not Recovered/Not Resolved]
  - Condition aggravated [Not Recovered/Not Resolved]
  - Hypersensitivity [Not Recovered/Not Resolved]
  - Dry skin [Not Recovered/Not Resolved]
  - Rash [Recovered/Resolved]
  - Angioedema [Not Recovered/Not Resolved]
  - Drug administration error [Unknown]
